FAERS Safety Report 24859774 (Version 2)
Quarter: 2025Q1

REPORT INFORMATION
  Report Type: Report from Study
  Country: FR (occurrence: FR)
  Receive Date: 20250119
  Receipt Date: 20250128
  Transmission Date: 20250409
  Serious: Yes (Life-Threatening)
  Sender: ABBVIE
  Company Number: FR-ABBVIE-6089732

PATIENT
  Age: 71 Year
  Sex: Male
  Weight: 62 kg

DRUGS (11)
  1. FOSCARBIDOPA\FOSLEVODOPA [Suspect]
     Active Substance: FOSCARBIDOPA\FOSLEVODOPA
     Indication: Parkinson^s disease
     Dosage: FREQUENCY OF INFUSION SITE ROTATIONS: ALL REGIONS (ABDOMEN AND OUTSIDE THE ABDOMEN)
     Route: 058
     Dates: start: 20250113, end: 20250114
  2. FOSCARBIDOPA\FOSLEVODOPA [Suspect]
     Active Substance: FOSCARBIDOPA\FOSLEVODOPA
     Dosage: FREQUENCY OF INFUSION SITE ROTATIONS: ALL REGIONS (ABDOMEN AND OUTSIDE THE ABDOMEN)
     Route: 058
     Dates: start: 20250120
  3. FOSCARBIDOPA\FOSLEVODOPA [Suspect]
     Active Substance: FOSCARBIDOPA\FOSLEVODOPA
     Dosage: BASIC FLOW RATE: 0.6 ML/H, DURATION 12 HOURS, LOW ALTERNATIVE FLOW: 0.3 ML/H, DURATION 12 HOURS, ...
     Route: 058
     Dates: start: 20250114, end: 20250115
  4. FOSCARBIDOPA\FOSLEVODOPA [Suspect]
     Active Substance: FOSCARBIDOPA\FOSLEVODOPA
     Dosage: BASIC FLOW RATE: 0.6 ML/H, DURATION 12 HOURS, LOW ALTERNATIVE FLOW: 0.1 ML/H, DURATION 12 HOURS, ...
     Route: 058
     Dates: start: 20250115, end: 20250117
  5. FOSCARBIDOPA\FOSLEVODOPA [Suspect]
     Active Substance: FOSCARBIDOPA\FOSLEVODOPA
     Dosage: BASIC FLOW RATE: 0.6 ML/H, DURATION 14 HOURS, LOW ALTERNATIVE FLOW: 0.3 ML/H, DURATION 10 HOURS, ...
     Route: 058
     Dates: start: 20250117, end: 20250120
  6. TEMESTA [Concomitant]
     Indication: Anxiety
     Route: 048
     Dates: start: 20250114
  7. CLOZAPINE [Concomitant]
     Active Substance: CLOZAPINE
     Indication: Product used for unknown indication
     Dates: start: 20250114, end: 20250116
  8. CLOZAPINE [Concomitant]
     Active Substance: CLOZAPINE
     Indication: Product used for unknown indication
     Dates: start: 20250117
  9. MIRTAZAPINE [Concomitant]
     Active Substance: MIRTAZAPINE
     Indication: Anxiety
     Route: 048
     Dates: start: 20250115, end: 20250120
  10. MIRTAZAPINE [Concomitant]
     Active Substance: MIRTAZAPINE
     Indication: Anxiety
     Route: 048
     Dates: start: 20250120
  11. MIDAZOLAM [Concomitant]
     Active Substance: MIDAZOLAM
     Indication: Sedation
     Route: 030
     Dates: start: 20250114, end: 20250114

REACTIONS (1)
  - Suicide attempt [Recovering/Resolving]

NARRATIVE: CASE EVENT DATE: 20250114
